FAERS Safety Report 12942081 (Version 1)
Quarter: 2016Q4

REPORT INFORMATION
  Report Type: Spontaneous
  Country: US (occurrence: US)
  Receive Date: 20161115
  Receipt Date: 20161115
  Transmission Date: 20170207
  Serious: No
  Sender: FDA-Public Use
  Company Number: US-WEST-WARD PHARMACEUTICALS CORP.-US-H14001-16-01945

PATIENT
  Sex: Female
  Weight: 61.29 kg

DRUGS (6)
  1. LORATADINE. [Concomitant]
     Active Substance: LORATADINE
     Indication: HYPERSENSITIVITY
     Route: 065
  2. BENADRYL [Concomitant]
     Active Substance: DIPHENHYDRAMINE HYDROCHLORIDE
     Indication: PRODUCT USED FOR UNKNOWN INDICATION
     Route: 065
  3. NUTRITIONAL SUPPLEMENTS [Concomitant]
     Active Substance: DIETARY SUPPLEMENT
     Indication: PRODUCT USED FOR UNKNOWN INDICATION
     Route: 065
  4. LITHIUM. [Suspect]
     Active Substance: LITHIUM
     Indication: BIPOLAR DISORDER
     Route: 048
     Dates: start: 20160717
  5. BENADRYL [Concomitant]
     Active Substance: DIPHENHYDRAMINE HYDROCHLORIDE
     Route: 065
  6. WESTERN FAMILY PAIN RELIEVING [Concomitant]
     Active Substance: CAMPHOR (SYNTHETIC)\MENTHOL\METHYL SALICYLATE
     Indication: SINUS HEADACHE
     Route: 065

REACTIONS (7)
  - Memory impairment [Not Recovered/Not Resolved]
  - Somnolence [Not Recovered/Not Resolved]
  - Palpitations [Not Recovered/Not Resolved]
  - Hunger [Not Recovered/Not Resolved]
  - Dizziness [Not Recovered/Not Resolved]
  - Fatigue [Not Recovered/Not Resolved]
  - Drug dose omission [Recovered/Resolved]

NARRATIVE: CASE EVENT DATE: 2016
